FAERS Safety Report 17867677 (Version 1)
Quarter: 2020Q2

REPORT INFORMATION
  Report Type: Spontaneous
  Country: US (occurrence: US)
  Receive Date: 20200605
  Receipt Date: 20200605
  Transmission Date: 20200714
  Serious: Yes (Hospitalization)
  Sender: FDA-Public Use
  Company Number: US-PAIPHARMA-2020-US-010349

PATIENT
  Age: 31 Year
  Sex: Male

DRUGS (1)
  1. LEVETIRACETAM ORAL SOLUTION [Suspect]
     Active Substance: LEVETIRACETAM
     Indication: GENERALISED TONIC-CLONIC SEIZURE
     Dosage: 750 MG TWICE DAILY

REACTIONS (1)
  - Glomerulonephritis minimal lesion [Unknown]
